FAERS Safety Report 6753426-5 (Version None)
Quarter: 2010Q2

REPORT INFORMATION
  Report Type: 
  Country: None (occurrence: None)
  Receive Date: 20100520
  Receipt Date: 20090429
  Transmission Date: 20101027
  Serious: Yes (Other)
  Sender: FDA-Public Use
  Company Number: 2009206952

PATIENT
  Age: 50 Year
  Sex: Female
  Weight: 57 kg

DRUGS (12)
  1. PROVERA [Suspect]
     Indication: HORMONE REPLACEMENT THERAPY
     Dosage: ORAL
     Route: 048
     Dates: start: 19710101, end: 19810101
  2. PROVERA [Suspect]
     Indication: MENOPAUSE
     Dosage: ORAL
     Route: 048
     Dates: start: 19710101, end: 19810101
  3. DEPO-PROVERA [Suspect]
     Indication: HORMONE REPLACEMENT THERAPY
     Route: 030
     Dates: start: 19820101, end: 20020101
  4. DEPO-PROVERA [Suspect]
     Indication: MENOPAUSE
     Route: 030
     Dates: start: 19820101, end: 20020101
  5. PREMARIN [Suspect]
     Indication: HORMONE REPLACEMENT THERAPY
     Dates: start: 19730101, end: 19810101
  6. PREMARIN [Suspect]
     Indication: MENOPAUSE
     Dates: start: 19730101, end: 19810101
  7. PREMARIN [Suspect]
     Indication: HORMONE REPLACEMENT THERAPY
     Dates: start: 19860101, end: 19880101
  8. PREMARIN [Suspect]
     Indication: MENOPAUSE
     Dates: start: 19860101, end: 19880101
  9. ESTRACE [Suspect]
     Indication: HORMONE REPLACEMENT THERAPY
     Dates: start: 19800101, end: 19810101
  10. ESTRACE [Suspect]
     Indication: MENOPAUSE
     Dates: start: 19800101, end: 19810101
  11. ESTRACE [Suspect]
     Indication: HORMONE REPLACEMENT THERAPY
     Dates: start: 19910101
  12. ESTRACE [Suspect]
     Indication: MENOPAUSE
     Dates: start: 19910101

REACTIONS (2)
  - BREAST CANCER FEMALE [None]
  - HEPATOMEGALY [None]
